FAERS Safety Report 9555257 (Version 1)
Quarter: 2013Q3

REPORT INFORMATION
  Report Type: Spontaneous
  Country: US (occurrence: None)
  Receive Date: 20130830
  Receipt Date: 20130830
  Transmission Date: 20140515
  Serious: Yes (Hospitalization, Other)
  Sender: FDA-Public Use
  Company Number: KV201300135

PATIENT
  Age: 1 Day
  Sex: Male

DRUGS (1)
  1. MAKENA [Suspect]
     Indication: EXPOSURE DURING PREGNANCY
     Dates: start: 201212

REACTIONS (2)
  - Premature baby [None]
  - Exposure during pregnancy [None]
